FAERS Safety Report 7500859-5 (Version None)
Quarter: 2011Q2

REPORT INFORMATION
  Report Type: 
  Country: None (occurrence: None)
  Receive Date: 20110524
  Receipt Date: 20110519
  Transmission Date: 20111010
  Serious: Yes (Hospitalization)
  Sender: FDA-Public Use
  Company Number: A0928044A

PATIENT
  Sex: Male

DRUGS (3)
  1. LAMICTAL [Suspect]
     Indication: EPILEPSY
     Dosage: 600MG PER DAY
     Route: 048
  2. OXYTOCIN [Concomitant]
  3. EPIDURAL [Concomitant]

REACTIONS (3)
  - DYSPNOEA [None]
  - DRUG EXPOSURE DURING PREGNANCY [None]
  - SKIN DISCOLOURATION [None]
